FAERS Safety Report 17760496 (Version 1)
Quarter: 2020Q2

REPORT INFORMATION
  Report Type: Spontaneous
  Country: US (occurrence: US)
  Receive Date: 20200508
  Receipt Date: 20200508
  Transmission Date: 20200714
  Serious: Yes (Death, Other)
  Sender: FDA-Public Use
  Company Number: US-TEVA-2020-US-1233205

PATIENT

DRUGS (4)
  1. ACTIQ [Suspect]
     Active Substance: FENTANYL CITRATE
     Indication: PAIN MANAGEMENT
     Route: 065
  2. FENTORA [Suspect]
     Active Substance: FENTANYL CITRATE
     Indication: PAIN MANAGEMENT
     Route: 065
  3. UNSPECIFIED OPIOIDS [Suspect]
     Active Substance: UNSPECIFIED INGREDIENT
     Indication: PAIN MANAGEMENT
     Route: 065
  4. NARCOTICS [Suspect]
     Active Substance: UNSPECIFIED INGREDIENT
     Indication: PAIN MANAGEMENT
     Route: 065

REACTIONS (8)
  - Dependence [Unknown]
  - Withdrawal syndrome [Unknown]
  - Overdose [Unknown]
  - Product use in unapproved indication [Unknown]
  - Prescription drug used without a prescription [Unknown]
  - Toxicity to various agents [Fatal]
  - Malaise [Unknown]
  - Pain [Unknown]
